FAERS Safety Report 15701855 (Version 2)
Quarter: 2018Q4

REPORT INFORMATION
  Report Type: Spontaneous
  Country: BE (occurrence: BE)
  Receive Date: 20181208
  Receipt Date: 20181226
  Transmission Date: 20190205
  Serious: Yes (Hospitalization, Other)
  Sender: FDA-Public Use
  Company Number: BE-AMGEN-BELSP2018173793

PATIENT
  Age: 51 Year
  Sex: Female
  Weight: 77 kg

DRUGS (4)
  1. VIVELLE-DOT [Concomitant]
     Active Substance: ESTRADIOL
     Dosage: 50 MUG, QD (1 PATCH/24H CONTINUOUSLY / ACTIVE 24H)
  2. REPATHA [Suspect]
     Active Substance: EVOLOCUMAB
     Indication: TYPE IIA HYPERLIPIDAEMIA
     Dosage: UNK, Q2WK (15DAYS)
     Route: 058
     Dates: start: 20181015, end: 20181115
  3. PRALUENT [Concomitant]
     Active Substance: ALIROCUMAB
     Dosage: 75 MG, (15 DAYS) UNK
  4. L-THYROXINE [Concomitant]
     Active Substance: LEVOTHYROXINE
     Dosage: 50 MUG, QD

REACTIONS (1)
  - Multiple sclerosis [Recovered/Resolved]

NARRATIVE: CASE EVENT DATE: 20181117
